FAERS Safety Report 15222332 (Version 3)
Quarter: 2018Q3

REPORT INFORMATION
  Report Type: Spontaneous
  Country: GB (occurrence: GB)
  Receive Date: 20180731
  Receipt Date: 20180913
  Transmission Date: 20181010
  Serious: Yes (Hospitalization)
  Sender: FDA-Public Use
  Company Number: GB-PFIZER INC-2018299077

PATIENT
  Sex: Male
  Weight: 79 kg

DRUGS (45)
  1. DEXAMETHASONE. [Concomitant]
     Active Substance: DEXAMETHASONE
     Dosage: 20 MG, UNK
     Dates: start: 20180405, end: 20180405
  2. ONDANSETRON [Concomitant]
     Active Substance: ONDANSETRON
     Dosage: 8 MG, UNK
     Route: 065
     Dates: start: 20170312
  3. TRAMADOL HYDROCHLORIDE. [Concomitant]
     Active Substance: TRAMADOL HYDROCHLORIDE
     Dosage: 100 MG, UNK
     Dates: start: 19880101, end: 20180522
  4. PEMETREXED. [Suspect]
     Active Substance: PEMETREXED
     Dosage: UNK UNK, EVERY 3 WEEKS
     Route: 042
     Dates: start: 20180502
  5. INCB024360 [Suspect]
     Active Substance: EPACADOSTAT
     Dosage: UNK
     Route: 065
     Dates: start: 20180405, end: 20180413
  6. AMLODIPINE [Concomitant]
     Active Substance: AMLODIPINE BESYLATE
     Indication: NON-SMALL CELL LUNG CANCER
     Dosage: 5 MG, UNK
  7. ONDANSETRON [Concomitant]
     Active Substance: ONDANSETRON
     Dosage: 8 MG, UNK
     Route: 065
     Dates: start: 20180405, end: 20180405
  8. QUININE BISULFATE [Concomitant]
     Active Substance: QUININE BISULFATE
     Indication: NON-SMALL CELL LUNG CANCER
     Dosage: 300 MG, UNK
     Dates: start: 20080101
  9. SENNA [Concomitant]
     Active Substance: SENNA LEAF\SENNOSIDES\SENNOSIDES A AND B
     Indication: NON-SMALL CELL LUNG CANCER
     Dosage: 75 MG, UNK
     Dates: start: 20080101
  10. NAPROXEN. [Concomitant]
     Active Substance: NAPROXEN
     Indication: NON-SMALL CELL LUNG CANCER
     Dosage: 1000 MG, UNK
  11. XYLOPROCT [Concomitant]
     Dosage: UNK
     Route: 065
     Dates: start: 20170419, end: 20180502
  12. MORPHINE SULFATE. [Concomitant]
     Active Substance: MORPHINE SULFATE
     Indication: NON-SMALL CELL LUNG CANCER
     Dosage: 10 MG, UNK
     Dates: start: 19880101, end: 20180521
  13. MORPHINE SULFATE. [Concomitant]
     Active Substance: MORPHINE SULFATE
     Dosage: 10 MG, UNK
     Dates: start: 20080101
  14. ONDANSETRON [Concomitant]
     Active Substance: ONDANSETRON
     Dosage: 4 MG, UNK
     Dates: start: 20180405, end: 20180407
  15. BISOPROLOL [Concomitant]
     Active Substance: BISOPROLOL
     Indication: NON-SMALL CELL LUNG CANCER
     Dosage: 2.5 MG, UNK
     Dates: start: 20070101
  16. CARBOPLATIN. [Suspect]
     Active Substance: CARBOPLATIN
     Dosage: UNK UNK, EVERY 3 WEEKS
     Route: 042
     Dates: start: 20180502
  17. PEMETREXED. [Suspect]
     Active Substance: PEMETREXED
     Dosage: UNK UNK, EVERY 3 WEEKS
     Route: 042
     Dates: start: 20180405, end: 20180405
  18. PEMBROLIZUMAB. [Suspect]
     Active Substance: PEMBROLIZUMAB
     Indication: NON-SMALL CELL LUNG CANCER
     Dosage: 200 MG, EVERY 3 WEEKS
     Route: 042
     Dates: start: 20180312, end: 20180312
  19. ACETAMINOPHEN. [Concomitant]
     Active Substance: ACETAMINOPHEN
     Indication: NON-SMALL CELL LUNG CANCER
     Dosage: UNK
  20. RAMIPRIL. [Concomitant]
     Active Substance: RAMIPRIL
     Indication: NON-SMALL CELL LUNG CANCER
     Dosage: 10 MG, UNK
     Dates: start: 200101
  21. INSTILLAGEL [Concomitant]
     Active Substance: CHLORHEXIDINE GLUCONATE\LIDOCAINE HYDROCHLORIDE
     Dosage: UNK
     Route: 065
     Dates: start: 20170414, end: 20180416
  22. DOCUSATE SODIUM. [Concomitant]
     Active Substance: DOCUSATE SODIUM
     Indication: NON-SMALL CELL LUNG CANCER
     Dosage: UNK
  23. CETRIZINE [Concomitant]
     Active Substance: CETIRIZINE HYDROCHLORIDE
     Dosage: 20 MG, UNK
     Dates: start: 20180320
  24. OTOMIZE [Concomitant]
     Active Substance: DEXAMETHASONE\NEOMYCIN SULFATE
     Dosage: 1 DF, UNK
     Route: 065
     Dates: start: 201601, end: 20180417
  25. PEMETREXED. [Suspect]
     Active Substance: PEMETREXED
     Indication: NON-SMALL CELL LUNG CANCER
     Dosage: 500 MG/M2, EVERY 3 WEEKS
     Route: 042
     Dates: start: 20180312, end: 20180312
  26. PEMBROLIZUMAB. [Suspect]
     Active Substance: PEMBROLIZUMAB
     Dosage: 200 MG, EVERY 3 WEEKS
     Route: 042
     Dates: start: 20180405, end: 20180405
  27. INCB024360 [Suspect]
     Active Substance: EPACADOSTAT
     Indication: NON-SMALL CELL LUNG CANCER
     Dosage: UNK
     Route: 065
     Dates: start: 20180312, end: 20180404
  28. INCB024360 [Suspect]
     Active Substance: EPACADOSTAT
     Dosage: UNK
     Route: 065
     Dates: start: 20180414
  29. NITROGLYCERIN. [Concomitant]
     Active Substance: NITROGLYCERIN
     Indication: NON-SMALL CELL LUNG CANCER
     Dosage: 0.4 MG, UNK
  30. TINZAPARIN SODIUM [Concomitant]
     Active Substance: TINZAPARIN SODIUM
     Dosage: 4500 DF, UNK
     Route: 065
     Dates: start: 20170413, end: 20180415
  31. DIHYDROCODEINE [Concomitant]
     Active Substance: DIHYDROCODEINE
     Indication: NON-SMALL CELL LUNG CANCER
     Dosage: UNK
  32. FOLIC ACID. [Concomitant]
     Active Substance: FOLIC ACID
     Dosage: 0.4 MG, UNK
     Dates: start: 20180306
  33. CARBOPLATIN. [Suspect]
     Active Substance: CARBOPLATIN
     Dosage: UNK UNK, EVERY 3 WEEKS
     Route: 042
     Dates: start: 20180405, end: 20180405
  34. PEMBROLIZUMAB. [Suspect]
     Active Substance: PEMBROLIZUMAB
     Dosage: 200 MG, EVERY 3 WEEKS
     Route: 042
     Dates: start: 20180502
  35. DEXAMETHASONE. [Concomitant]
     Active Substance: DEXAMETHASONE
     Dosage: 4 MG, UNK
     Dates: start: 20180405, end: 20180407
  36. LANSOPRAZOLE. [Concomitant]
     Active Substance: LANSOPRAZOLE
     Indication: NON-SMALL CELL LUNG CANCER
     Dosage: UNK
     Dates: start: 20080101
  37. GABAPENTIN. [Concomitant]
     Active Substance: GABAPENTIN
     Dosage: 300 MG, UNK
     Dates: start: 200101
  38. CARBOPLATIN. [Suspect]
     Active Substance: CARBOPLATIN
     Indication: NON-SMALL CELL LUNG CANCER
     Dosage: UNK UNK, EVERY 3 WEEKS
     Route: 042
     Dates: start: 20180312, end: 20180312
  39. ATORVASTATIN [Concomitant]
     Active Substance: ATORVASTATIN
     Indication: NON-SMALL CELL LUNG CANCER
     Dosage: UNK
  40. LACTULOSE. [Concomitant]
     Active Substance: LACTULOSE
     Indication: NON-SMALL CELL LUNG CANCER
     Dosage: 5 ML, UNK
     Dates: start: 20080101
  41. ASPIRIN (E.C.) [Concomitant]
     Active Substance: ASPIRIN
     Indication: NON-SMALL CELL LUNG CANCER
     Dosage: 75 MG, UNK
     Dates: start: 200101
  42. DIAZEPAM. [Concomitant]
     Active Substance: DIAZEPAM
     Indication: NON-SMALL CELL LUNG CANCER
     Dosage: UNK
  43. CARBAMAZEPINE. [Concomitant]
     Active Substance: CARBAMAZEPINE
     Dosage: 200 MG, UNK
     Route: 065
     Dates: start: 20170413, end: 20180416
  44. GRANULOCYTE COLONY STIMULATING FACTOR [Concomitant]
     Active Substance: GRANULOCYTE COLONY-STIMULATING FACTOR NOS
     Dosage: 300 UG, UNK
     Route: 065
     Dates: start: 20180414, end: 20180414
  45. DEXAMETHASONE. [Concomitant]
     Active Substance: DEXAMETHASONE
     Dosage: 20 MG, UNK
     Route: 065
     Dates: start: 20170312

REACTIONS (3)
  - Exfoliative rash [Recovered/Resolved]
  - Neutropenia [Recovered/Resolved]
  - Sepsis [Unknown]

NARRATIVE: CASE EVENT DATE: 20180413
